FAERS Safety Report 20513232 (Version 1)
Quarter: 2022Q1

REPORT INFORMATION
  Report Type: Spontaneous
  Country: US (occurrence: US)
  Receive Date: 20220224
  Receipt Date: 20220224
  Transmission Date: 20220424
  Serious: No
  Sender: FDA-Public Use
  Company Number: US-AMNEAL PHARMACEUTICALS-2021-AMRX-01529

PATIENT
  Sex: Male

DRUGS (6)
  1. RYTARY [Suspect]
     Active Substance: CARBIDOPA\LEVODOPA
     Indication: Parkinson^s disease
     Dosage: 36.25/145MG, 5 CAPSULES, DAILY
     Route: 048
     Dates: start: 20210422, end: 202105
  2. RYTARY [Suspect]
     Active Substance: CARBIDOPA\LEVODOPA
     Indication: Dyskinesia
     Dosage: 48.75/195MG, 3 CAPSULES, DAILY
     Route: 048
     Dates: start: 20210422, end: 202105
  3. RYTARY [Suspect]
     Active Substance: CARBIDOPA\LEVODOPA
     Dosage: 48.75/195MG, 6 CAPSULES, DAILY
     Route: 048
     Dates: start: 20210506, end: 202105
  4. RYTARY [Suspect]
     Active Substance: CARBIDOPA\LEVODOPA
     Dosage: 36.25/145MG, 3 CAPSULES, DAILY
     Route: 048
     Dates: start: 20210506, end: 202105
  5. RYTARY [Suspect]
     Active Substance: CARBIDOPA\LEVODOPA
     Dosage: 48.75/195MG, 3 CAPSULES, DAILY
     Route: 048
     Dates: start: 202105, end: 202105
  6. RYTARY [Suspect]
     Active Substance: CARBIDOPA\LEVODOPA
     Dosage: 48.75/195MG, 7 CAPSULES, DAILY
     Route: 048
     Dates: start: 20210511

REACTIONS (2)
  - Therapeutic product effect delayed [Unknown]
  - Freezing phenomenon [Unknown]

NARRATIVE: CASE EVENT DATE: 20210101
